FAERS Safety Report 15109590 (Version 1)
Quarter: 2018Q3

REPORT INFORMATION
  Report Type: Spontaneous
  Country: GB (occurrence: GB)
  Receive Date: 20180705
  Receipt Date: 20180705
  Transmission Date: 20181010
  Serious: Yes (Other)
  Sender: FDA-Public Use
  Company Number: GB-DRREDDYS-GER/UKI/18/0101150

PATIENT
  Age: 69 Year
  Sex: Female
  Weight: 66.67 kg

DRUGS (3)
  1. CETIRIZINE HYDROCHLORIDE 10MG TABLETS, DR. REDDY^S [Suspect]
     Active Substance: CETIRIZINE HYDROCHLORIDE
     Indication: SEASONAL ALLERGY
     Route: 048
     Dates: start: 20180313, end: 20180425
  2. GLUCOSAMINE SULFATE [Concomitant]
     Active Substance: GLUCOSAMINE SULFATE
     Indication: PRODUCT USED FOR UNKNOWN INDICATION
  3. GINKGO BILOBA LEAF EXTRACT [Concomitant]
     Active Substance: GINKGO BILOBA LEAF EXTRACT
     Indication: PRODUCT USED FOR UNKNOWN INDICATION

REACTIONS (3)
  - Oropharyngeal pain [Not Recovered/Not Resolved]
  - Heart rate increased [Not Recovered/Not Resolved]
  - Heart rate irregular [Not Recovered/Not Resolved]

NARRATIVE: CASE EVENT DATE: 20180425
